FAERS Safety Report 20208603 (Version 2)
Quarter: 2021Q4

REPORT INFORMATION
  Report Type: Spontaneous
  Country: CA (occurrence: CA)
  Receive Date: 20211220
  Receipt Date: 20211229
  Transmission Date: 20220303
  Serious: Yes (Other)
  Sender: FDA-Public Use
  Company Number: CA-PFIZER INC-202101753849

PATIENT
  Age: 41 Year
  Sex: Female

DRUGS (2)
  1. GEMCITABINE HYDROCHLORIDE [Suspect]
     Active Substance: GEMCITABINE HYDROCHLORIDE
     Indication: Cholangiocarcinoma
     Dosage: UNK
  2. CISPLATIN [Concomitant]
     Active Substance: CISPLATIN
     Indication: Cholangiocarcinoma
     Dosage: UNK

REACTIONS (7)
  - Atypical haemolytic uraemic syndrome [Unknown]
  - Splenic infarction [Unknown]
  - Thrombocytopenia [Recovering/Resolving]
  - Visual impairment [Unknown]
  - Hypertension [Unknown]
  - Blood lactate dehydrogenase increased [Recovering/Resolving]
  - Blood creatinine increased [Unknown]
